FAERS Safety Report 14854577 (Version 1)
Quarter: 2018Q2

REPORT INFORMATION
  Report Type: Spontaneous
  Country: US (occurrence: US)
  Receive Date: 20180420
  Receipt Date: 20180420
  Transmission Date: 20180711
  Serious: Yes (Hospitalization, Disabling, Other)
  Sender: FDA-Public Use
  Company Number: None

PATIENT
  Age: 74 Year
  Sex: Male
  Weight: 84 kg

DRUGS (11)
  1. LANREOTIDE 90 MG (0.3ML) SUBQ ONCE WEEKLY [Concomitant]
  2. ASPIRIN 81 MG PO DAILY [Concomitant]
  3. CABERGOLINE. [Suspect]
     Active Substance: CABERGOLINE
     Indication: ACROMEGALY
     Dosage: ?          OTHER FREQUENCY:TWICE PER WEEK;?
     Route: 048
  4. PREDNISONE 10 MG PO DAILY [Concomitant]
  5. HYDROXYCHLOROQUINE 200 MG PO BID [Concomitant]
  6. METHOTREXATE 15 MG PO ONCE WEEKLY [Concomitant]
  7. ATORVASTATIN 80 MG PO DAILY [Concomitant]
  8. LISINOPRIL 10 MG PO DAILY [Concomitant]
  9. CHOLECALCIFEROL 1,000 IU PO DAILY [Concomitant]
  10. RANITIDINE 150 MG PO DAILY [Concomitant]
  11. FOLIC ACID 1 MG PO BID [Concomitant]

REACTIONS (3)
  - Treatment failure [None]
  - Staphylococcal sepsis [None]
  - Endocarditis [None]

NARRATIVE: CASE EVENT DATE: 20180415
